FAERS Safety Report 9679470 (Version 1)
Quarter: 2013Q4

REPORT INFORMATION
  Report Type: Spontaneous
  Country: US (occurrence: US)
  Receive Date: 20131109
  Receipt Date: 20131109
  Transmission Date: 20140711
  Serious: No
  Sender: FDA-Public Use
  Company Number: US-SANOFI-AVENTIS-2013SA051141

PATIENT
  Age: 77 Year
  Sex: Male

DRUGS (3)
  1. ALLEGRA-D [Suspect]
     Route: 048
     Dates: end: 20130513
  2. CLARITIN-D [Concomitant]
  3. CLARITIN [Concomitant]

REACTIONS (1)
  - Unevaluable event [Unknown]
